FAERS Safety Report 5874173-8 (Version None)
Quarter: 2008Q3

REPORT INFORMATION
  Report Type: 
  Country: None (occurrence: None)
  Receive Date: 20080903
  Receipt Date: 20080801
  Transmission Date: 20090109
  Serious: No
  Sender: FDA-Public Use
  Company Number: 2008-00851FE

PATIENT
  Age: 34 Year
  Sex: Female

DRUGS (4)
  1. BRAVELLE [Suspect]
     Indication: ASSISTED FERTILISATION
     Dosage: 225 IU/300 IU, SC
     Route: 058
     Dates: start: 20080612, end: 20080616
  2. BRAVELLE [Suspect]
     Indication: ASSISTED FERTILISATION
     Dosage: 225 IU/300 IU, SC
     Route: 058
     Dates: start: 20080617, end: 20080623
  3. R-HCG  (GONADOTROPHIN CHORIONIC) [Suspect]
     Indication: INFERTILITY
     Dosage: 250 MCG, UNK
     Dates: start: 20080624, end: 20080624
  4. TRIPTORELIN ACETATE [Suspect]

REACTIONS (2)
  - ASCITES [None]
  - OVARIAN HYPERSTIMULATION SYNDROME [None]
